FAERS Safety Report 17318112 (Version 1)
Quarter: 2020Q1

REPORT INFORMATION
  Report Type: Spontaneous
  Country: US (occurrence: US)
  Receive Date: 20200124
  Receipt Date: 20200124
  Transmission Date: 20200409
  Serious: Yes (Hospitalization)
  Sender: FDA-Public Use
  Company Number: US-ASTRAZENECA-2020SE08709

PATIENT
  Age: 72 Year
  Sex: Female
  Weight: 93 kg

DRUGS (8)
  1. MORPHINE MITIGO [Concomitant]
     Indication: PAIN
     Dosage: AS REQUIRED
     Route: 037
     Dates: start: 201903
  2. SYMBICORT [Suspect]
     Active Substance: BUDESONIDE\FORMOTEROL FUMARATE DIHYDRATE
     Indication: CHRONIC OBSTRUCTIVE PULMONARY DISEASE
     Dosage: 2 PUFFS TWO TIMES A DAYS
     Route: 055
     Dates: start: 201902
  3. AMBIEN [Concomitant]
     Active Substance: ZOLPIDEM TARTRATE
     Indication: SLEEP DISORDER
     Dosage: 10.0MG AS REQUIRED
     Route: 048
  4. XANAX [Concomitant]
     Active Substance: ALPRAZOLAM
     Indication: ANXIETY
     Dosage: AS REQUIRED
     Route: 048
  5. TAMIFLU [Concomitant]
     Active Substance: OSELTAMIVIR PHOSPHATE
     Indication: INFLUENZA
     Dates: start: 20200110, end: 20200116
  6. NYSTATIN. [Concomitant]
     Active Substance: NYSTATIN
     Indication: FUNGAL SKIN INFECTION
  7. KETOCONAZOLE SHAMPOO [Concomitant]
     Active Substance: KETOCONAZOLE
     Indication: FUNGAL SKIN INFECTION
  8. MORPHINE MITIGO [Concomitant]
     Indication: PAIN
     Dosage: 3.0MG CONTINUOUSLY
     Route: 039
     Dates: start: 201903

REACTIONS (16)
  - Productive cough [Unknown]
  - Pain [Not Recovered/Not Resolved]
  - Discomfort [Unknown]
  - Skin odour abnormal [Unknown]
  - Body temperature abnormal [Unknown]
  - Rash [Not Recovered/Not Resolved]
  - Headache [Recovering/Resolving]
  - Haemorrhage [Unknown]
  - Cold sweat [Recovering/Resolving]
  - Nausea [Recovering/Resolving]
  - Feeling abnormal [Recovering/Resolving]
  - Rash [Unknown]
  - Vomiting [Unknown]
  - Influenza [Recovering/Resolving]
  - Alopecia [Not Recovered/Not Resolved]
  - Fungal skin infection [Not Recovered/Not Resolved]

NARRATIVE: CASE EVENT DATE: 2019
